FAERS Safety Report 13570899 (Version 1)
Quarter: 2017Q2

REPORT INFORMATION
  Report Type: Spontaneous
  Country: GB (occurrence: GB)
  Receive Date: 20170523
  Receipt Date: 20170523
  Transmission Date: 20170830
  Serious: Yes (Disabling)
  Sender: FDA-Public Use
  Company Number: GB-B.I. PHARMACEUTICALS,INC./RIDGEFIELD-2017-BI-028124

PATIENT
  Age: 69 Year
  Sex: Male
  Weight: 103 kg

DRUGS (1)
  1. PRADAXA [Suspect]
     Active Substance: DABIGATRAN ETEXILATE MESYLATE
     Indication: ATRIAL FIBRILLATION
     Route: 048
     Dates: start: 20141008

REACTIONS (2)
  - Dysarthria [Not Recovered/Not Resolved]
  - Tongue movement disturbance [Not Recovered/Not Resolved]

NARRATIVE: CASE EVENT DATE: 20161216
